FAERS Safety Report 9464670 (Version 1)
Quarter: 2013Q3

REPORT INFORMATION
  Report Type: Spontaneous
  Country: BR (occurrence: BR)
  Receive Date: 20130819
  Receipt Date: 20130819
  Transmission Date: 20140515
  Serious: Yes (Hospitalization, Other)
  Sender: FDA-Public Use
  Company Number: BR-009507513-1308BRA006838

PATIENT
  Age: 36 Year
  Sex: Female
  Weight: 59 kg

DRUGS (1)
  1. NUVARING [Suspect]
     Indication: CONTRACEPTION
     Dosage: UNK
     Route: 067
     Dates: start: 2010

REACTIONS (9)
  - Obesity surgery [Recovered/Resolved]
  - Gallbladder operation [Recovered/Resolved]
  - Abdominal operation [Recovered/Resolved]
  - Malabsorption [Not Recovered/Not Resolved]
  - Hypotonia [Unknown]
  - Cholelithiasis [Recovered/Resolved]
  - Menorrhagia [Not Recovered/Not Resolved]
  - Menstrual disorder [Not Recovered/Not Resolved]
  - Headache [Recovered/Resolved]
